FAERS Safety Report 4318703-6 (Version None)
Quarter: 2004Q1

REPORT INFORMATION
  Report Type: 
  Country: None (occurrence: None)
  Receive Date: 20040315
  Receipt Date: 20031215
  Transmission Date: 20041129
  Serious: No
  Sender: FDA-Public Use
  Company Number: M2004.0104

PATIENT
  Age: 17 Year
  Sex: Female

DRUGS (1)
  1. AMOXICILLIN AND CLAVULANATE POTASSIUM [Suspect]
     Indication: ANGINA PECTORIS
     Dosage: 4 TABLETS

REACTIONS (3)
  - COUGH [None]
  - EPIGLOTTITIS [None]
  - HYPERSENSITIVITY [None]
